FAERS Safety Report 8174185-8 (Version None)
Quarter: 2012Q1

REPORT INFORMATION
  Report Type: 
  Country: None (occurrence: None)
  Receive Date: 20120227
  Receipt Date: 20120216
  Transmission Date: 20120608
  Serious: Yes (Life-Threatening, Other)
  Sender: FDA-Public Use
  Company Number: 2012AP000109

PATIENT
  Age: 65 Year
  Sex: Male

DRUGS (4)
  1. AMLODIPINE [Concomitant]
  2. METOPROLOL TARTRATE [Concomitant]
  3. ACETYLSALICYLIC ACID SRT [Concomitant]
  4. BENAZEPRIL HYDROCHLORIDE [Suspect]
     Indication: HYPERTENSION

REACTIONS (4)
  - DYSPNOEA [None]
  - RASH ERYTHEMATOUS [None]
  - ANGIOEDEMA [None]
  - URTICARIA [None]
